FAERS Safety Report 22595274 (Version 2)
Quarter: 2023Q2

REPORT INFORMATION
  Report Type: Report from Study
  Country: US (occurrence: US)
  Receive Date: 20230613
  Receipt Date: 20230616
  Transmission Date: 20230721
  Serious: No
  Sender: FDA-Public Use
  Company Number: US-002147023-NVSC2023US131397

PATIENT
  Sex: Female

DRUGS (2)
  1. CLOBETASOL [Suspect]
     Active Substance: CLOBETASOL
     Indication: Psoriasis
     Dosage: UNK
     Route: 065
  2. HYDROCORTISONE [Suspect]
     Active Substance: HYDROCORTISONE
     Indication: Psoriasis
     Dosage: UNK
     Route: 065

REACTIONS (10)
  - Quality of life decreased [Unknown]
  - Psoriasis [Unknown]
  - Sensitive skin [Unknown]
  - Pruritus [Unknown]
  - Erythema [Unknown]
  - Skin plaque [Unknown]
  - Alopecia [Unknown]
  - Arthralgia [Unknown]
  - Emotional distress [Unknown]
  - Drug ineffective [Unknown]
